FAERS Safety Report 11431531 (Version 2)
Quarter: 2015Q3

REPORT INFORMATION
  Report Type: Spontaneous
  Country: JP (occurrence: JP)
  Receive Date: 20150828
  Receipt Date: 20150901
  Transmission Date: 20151125
  Serious: Yes (Other)
  Sender: FDA-Public Use
  Company Number: JP-PFIZER INC-2015279282

PATIENT
  Age: 59 Year
  Sex: Female

DRUGS (3)
  1. MINOMYCIN [Suspect]
     Active Substance: MINOCYCLINE HYDROCHLORIDE
     Indication: CAT SCRATCH DISEASE
     Dosage: 100 MG, 2X/DAY
     Route: 048
     Dates: start: 201508, end: 201508
  2. UNASYN [Suspect]
     Active Substance: AMPICILLIN SODIUM\SULBACTAM SODIUM
     Indication: CAT SCRATCH DISEASE
     Dosage: 1.5 G, UNK
     Route: 041
     Dates: start: 201508
  3. ZITHROMAC [Suspect]
     Active Substance: AZITHROMYCIN DIHYDRATE
     Indication: CAT SCRATCH DISEASE
     Dosage: UNK
     Route: 048
     Dates: start: 201508

REACTIONS (2)
  - Cellulitis [Recovered/Resolved]
  - Drug ineffective [Unknown]

NARRATIVE: CASE EVENT DATE: 201508
